FAERS Safety Report 11205255 (Version 1)
Quarter: 2015Q2

REPORT INFORMATION
  Report Type: Spontaneous
  Country: US (occurrence: None)
  Receive Date: 20150618
  Receipt Date: 20150618
  Transmission Date: 20150821
  Serious: No
  Sender: FDA-Public Use
  Company Number: None

PATIENT
  Age: 54 Year
  Sex: Male

DRUGS (2)
  1. NAPROXEN. [Suspect]
     Active Substance: NAPROXEN
     Indication: PAIN
     Route: 048
     Dates: start: 20150201, end: 20150311
  2. LISINOPRIL. [Suspect]
     Active Substance: LISINOPRIL
     Indication: HYPERTENSION
     Route: 048
     Dates: start: 20150101, end: 20150311

REACTIONS (7)
  - Stress [None]
  - Acute kidney injury [None]
  - Hypophagia [None]
  - Confusional state [None]
  - Hypotension [None]
  - Acidosis [None]
  - Fall [None]

NARRATIVE: CASE EVENT DATE: 20150311
